FAERS Safety Report 8192731-5 (Version None)
Quarter: 2012Q1

REPORT INFORMATION
  Report Type: 
  Country: None (occurrence: None)
  Receive Date: 20120308
  Receipt Date: 20120305
  Transmission Date: 20120608
  Serious: No
  Sender: FDA-Public Use
  Company Number: US-PFIZER INC-2011063850

PATIENT
  Sex: Female
  Weight: 47.6 kg

DRUGS (3)
  1. LORAZEPAM [Concomitant]
     Dosage: 0.5 MG, 1X/DAY
  2. LEVOXYL [Suspect]
     Indication: HYPOTHYROIDISM
     Dosage: 50 UG, 1X/DAY
     Route: 048
     Dates: start: 20110317, end: 20110318
  3. SIMVASTATIN [Concomitant]
     Indication: BLOOD CHOLESTEROL INCREASED
     Dosage: 20 MG, 1X/DAY

REACTIONS (1)
  - ABDOMINAL PAIN UPPER [None]
